FAERS Safety Report 6220646-8 (Version None)
Quarter: 2009Q2

REPORT INFORMATION
  Report Type: 
  Country: None (occurrence: None)
  Receive Date: 20090610
  Receipt Date: 20090604
  Transmission Date: 20091009
  Serious: Yes (Hospitalization)
  Sender: FDA-Public Use
  Company Number: FR-ROCHE-636111

PATIENT
  Sex: Male

DRUGS (7)
  1. VALIUM [Suspect]
     Indication: DRUG USE FOR UNKNOWN INDICATION
     Route: 048
     Dates: start: 20090218, end: 20090218
  2. MEPRONIZINE [Suspect]
     Indication: DRUG USE FOR UNKNOWN INDICATION
     Route: 048
     Dates: start: 20090218, end: 20090218
  3. GLUCOPHAGE [Concomitant]
     Dosage: STRENGTH REPORTED AS 850
  4. HUMALOG [Concomitant]
  5. TEMERIT [Concomitant]
  6. COZAAR [Concomitant]
     Dosage: STRENGTH REPORTED AS 100
  7. FENOFIBRATE [Concomitant]
     Dosage: STRENGTH REPORTED AS 300

REACTIONS (2)
  - COMA [None]
  - RENAL FAILURE [None]
